FAERS Safety Report 21773272 (Version 2)
Quarter: 2023Q1

REPORT INFORMATION
  Report Type: Report from Study
  Country: CA (occurrence: CA)
  Receive Date: 20221223
  Receipt Date: 20230306
  Transmission Date: 20230418
  Serious: Yes (Hospitalization, Other)
  Sender: FDA-Public Use
  Company Number: CA-TAKEDA-2022TUS097905

PATIENT
  Age: 35 Year
  Sex: Male

DRUGS (12)
  1. VEDOLIZUMAB [Suspect]
     Active Substance: VEDOLIZUMAB
     Indication: Colitis ulcerative
     Dosage: 300 MILLIGRAM
     Route: 042
     Dates: start: 20221006
  2. VEDOLIZUMAB [Suspect]
     Active Substance: VEDOLIZUMAB
     Dosage: 300 MILLIGRAM, Q4WEEKS
     Route: 042
     Dates: start: 20221215
  3. VEDOLIZUMAB [Suspect]
     Active Substance: VEDOLIZUMAB
     Dosage: 300 MILLIGRAM, Q4WEEKS
     Route: 042
     Dates: end: 20230112
  4. PREDNISONE [Concomitant]
     Active Substance: PREDNISONE
     Dosage: 80 MILLIGRAM
     Route: 048
  5. PREDNISONE [Concomitant]
     Active Substance: PREDNISONE
     Dosage: 40 MILLIGRAM
     Route: 048
  6. Salofalk [Concomitant]
     Dosage: 1000 MILLIGRAM
  7. IRON [Concomitant]
     Active Substance: IRON
     Dosage: 900 MILLIGRAM
     Route: 048
  8. RAMIPRIL [Concomitant]
     Active Substance: RAMIPRIL
     Dosage: 5 MILLIGRAM
     Route: 048
  9. MESALAMINE [Concomitant]
     Active Substance: MESALAMINE
     Dosage: 4.8 MILLIGRAM
     Route: 048
  10. BETAMETHASONE [Concomitant]
     Active Substance: BETAMETHASONE
     Dosage: UNK
  11. BUDESONIDE [Concomitant]
     Active Substance: BUDESONIDE
     Dosage: 16 MILLIGRAM
     Route: 048
  12. XELJANZ [Concomitant]
     Active Substance: TOFACITINIB CITRATE
     Dosage: UNK
     Route: 048

REACTIONS (3)
  - Colitis ulcerative [Recovered/Resolved]
  - Therapeutic reaction time decreased [Unknown]
  - Off label use [Unknown]

NARRATIVE: CASE EVENT DATE: 20221215
